FAERS Safety Report 9984560 (Version 1)
Quarter: 2014Q1

REPORT INFORMATION
  Report Type: Report from Study
  Country: US (occurrence: US)
  Receive Date: 20140307
  Receipt Date: 20140307
  Transmission Date: 20141002
  Serious: Yes (Hospitalization)
  Sender: FDA-Public Use
  Company Number: US-BAYER-2014-034620

PATIENT
  Age: 53 Year
  Sex: Male

DRUGS (1)
  1. NEXAVAR [Suspect]
     Indication: HEPATIC CANCER
     Dosage: 4 X 200 MG
     Route: 048
     Dates: start: 20131104

REACTIONS (2)
  - Blood pressure abnormal [Not Recovered/Not Resolved]
  - Arthralgia [Not Recovered/Not Resolved]
